FAERS Safety Report 18278365 (Version 1)
Quarter: 2020Q3

REPORT INFORMATION
  Report Type: Report from Study
  Country: IT (occurrence: IT)
  Receive Date: 20200917
  Receipt Date: 20200917
  Transmission Date: 20201103
  Serious: Yes (Hospitalization)
  Sender: FDA-Public Use
  Company Number: IT-TEVA-2020-IT-1827664

PATIENT
  Age: 83 Year
  Sex: Male

DRUGS (11)
  1. TAMSULOSIN HYDROCHLORIDE. [Concomitant]
     Active Substance: TAMSULOSIN HYDROCHLORIDE
  2. CLOPIDOGREL HYDROCHLORIDE [Suspect]
     Active Substance: CLOPIDOGREL HYDROCHLORIDE
     Dosage: 75 MG
     Route: 048
     Dates: start: 20200101, end: 20200728
  3. ATENOLOL HYDROCHLORIDE [Concomitant]
     Active Substance: ATENOLOL HYDROCHLORIDE
  4. BRINTELLIX [Suspect]
     Active Substance: VORTIOXETINE HYDROBROMIDE
     Dosage: 10 GTT
     Route: 048
     Dates: start: 20200101, end: 20200728
  5. SINEMET [Concomitant]
     Active Substance: CARBIDOPA\LEVODOPA
     Dosage: 2.5 DOSAGE FORMS
  6. REPAGLINIDE. [Concomitant]
     Active Substance: REPAGLINIDE
  7. MIRTAZAPINE. [Concomitant]
     Active Substance: MIRTAZAPINE
  8. MICARDIS [Concomitant]
     Active Substance: TELMISARTAN
  9. DEPAKIN [Concomitant]
     Active Substance: VALPROATE SODIUM
     Dosage: 500 MG
  10. LANSOX [Concomitant]
     Active Substance: LANSOPRAZOLE
  11. CRESTOR [Concomitant]
     Active Substance: ROSUVASTATIN CALCIUM

REACTIONS (3)
  - Confusional state [Recovering/Resolving]
  - Urethral haemorrhage [Recovering/Resolving]
  - Haematuria [Recovering/Resolving]

NARRATIVE: CASE EVENT DATE: 20200728
